FAERS Safety Report 5920905-X (Version None)
Quarter: 2008Q4

REPORT INFORMATION
  Report Type: 
  Country: None (occurrence: None)
  Receive Date: 20081015
  Receipt Date: 20081015
  Transmission Date: 20090506
  Serious: Yes (Death)
  Sender: FDA-Public Use
  Company Number: None

PATIENT
  Age: 35 Year
  Sex: Male
  Weight: 127.0072 kg

DRUGS (1)
  1. DARVON-N [Suspect]
     Indication: PROCEDURAL PAIN
     Dosage: 500MG AS REQUIRED PO
     Route: 048
     Dates: start: 19950101, end: 20071106

REACTIONS (3)
  - DRUG TOXICITY [None]
  - GENERAL PHYSICAL HEALTH DETERIORATION [None]
  - MENTAL IMPAIRMENT [None]
